FAERS Safety Report 8451073-0 (Version None)
Quarter: 2012Q2

REPORT INFORMATION
  Report Type: 
  Country: None (occurrence: None)
  Receive Date: 20120620
  Receipt Date: 20120611
  Transmission Date: 20120825
  Serious: Yes (Other)
  Sender: FDA-Public Use
  Company Number: US-ASTRAZENECA-2008UW23412

PATIENT
  Age: 73 Year
  Sex: Female
  Weight: 68 kg

DRUGS (14)
  1. NEBIVOLOL HYDROCHLORIDE [Concomitant]
     Indication: BLOOD PRESSURE
  2. FISH OIL [Concomitant]
     Indication: SUPPLEMENTATION THERAPY
  3. ARIMIDEX [Suspect]
     Indication: BREAST CANCER
     Route: 048
     Dates: start: 20080321, end: 20120207
  4. SYNTHROID [Suspect]
     Dates: start: 20120412
  5. ATORVASTATIN CALCIUM [Concomitant]
     Indication: BLOOD CHOLESTEROL
  6. BYSTOLIC [Concomitant]
     Indication: HYPERTENSION
  7. ASCORBIC ACID [Concomitant]
     Indication: SUPPLEMENTATION THERAPY
  8. VITAMIN D [Concomitant]
  9. ACETYLSALICYLIC ACID SRT [Concomitant]
  10. ERGOCALCIFEROL [Concomitant]
     Indication: SUPPLEMENTATION THERAPY
  11. ARIMIDEX [Suspect]
     Indication: NEOPLASM PROPHYLAXIS
     Route: 048
     Dates: start: 20080321, end: 20120207
  12. SYNTHROID [Suspect]
     Indication: HYPOTHYROIDISM
     Dates: start: 19990101
  13. NORTRIPTYLINE HYDROCHLORIDE [Concomitant]
     Indication: FIBROMYALGIA
  14. LOSARTAN POTASSIUM [Concomitant]
     Indication: BLOOD PRESSURE

REACTIONS (9)
  - WEIGHT DECREASED [None]
  - BACK PAIN [None]
  - ALOPECIA [None]
  - DISTURBANCE IN ATTENTION [None]
  - BLOOD THYROID STIMULATING HORMONE DECREASED [None]
  - HYPERTENSION [None]
  - HYPOTHYROIDISM [None]
  - PAIN IN EXTREMITY [None]
  - HOT FLUSH [None]
